FAERS Safety Report 18414308 (Version 2)
Quarter: 2020Q4

REPORT INFORMATION
  Report Type: Spontaneous
  Country: US (occurrence: US)
  Receive Date: 20201022
  Receipt Date: 20201123
  Transmission Date: 20210114
  Serious: No
  Sender: FDA-Public Use
  Company Number: US-BAYER-2020-222611

PATIENT
  Sex: Female

DRUGS (1)
  1. MIRENA [Suspect]
     Active Substance: LEVONORGESTREL
     Indication: CONTRACEPTION
     Dosage: 20 ?G PER DAY CONTINUOUSLY
     Route: 015
     Dates: start: 20200203, end: 20200828

REACTIONS (3)
  - Weight increased [Recovered/Resolved]
  - Metrorrhagia [Recovered/Resolved]
  - Affective disorder [Recovered/Resolved]

NARRATIVE: CASE EVENT DATE: 2020
